FAERS Safety Report 18571491 (Version 5)
Quarter: 2021Q1

REPORT INFORMATION
  Report Type: Report from Study
  Country: US (occurrence: US)
  Receive Date: 20201202
  Receipt Date: 20210317
  Transmission Date: 20210419
  Serious: Yes (Other)
  Sender: FDA-Public Use
  Company Number: US-MALLINCKRODT-T202001038

PATIENT
  Age: 60 Year
  Sex: Female
  Weight: 63 kg

DRUGS (9)
  1. BETAMETHASONE. [Concomitant]
     Active Substance: BETAMETHASONE
     Indication: PRODUCT USED FOR UNKNOWN INDICATION
     Dosage: UNK
     Route: 065
  2. REPOSITORY CORTICOTROPIN INJECTION [Suspect]
     Active Substance: CORTICOTROPIN
     Dosage: 80 UNITS, TWICE A WEEK
     Route: 065
     Dates: end: 20210212
  3. REPOSITORY CORTICOTROPIN INJECTION [Suspect]
     Active Substance: CORTICOTROPIN
     Indication: ASTHMA
     Dosage: 40 UNITS 0.5 MILLILITER, TWICE A WEEK
     Route: 058
  4. REPOSITORY CORTICOTROPIN INJECTION [Suspect]
     Active Substance: CORTICOTROPIN
     Dosage: 80 UNITS, TWICE WEEKLY
     Route: 065
  5. FLU VACCINE [Suspect]
     Active Substance: INFLUENZA VIRUS VACCINE
     Indication: PRODUCT USED FOR UNKNOWN INDICATION
     Dosage: UNK
     Route: 065
     Dates: start: 20200923
  6. REPOSITORY CORTICOTROPIN INJECTION [Suspect]
     Active Substance: CORTICOTROPIN
     Dosage: 40 UNITS EVERY 2 DAYS
     Route: 058
     Dates: start: 2020
  7. DYMISTA [Concomitant]
     Active Substance: AZELASTINE HYDROCHLORIDE\FLUTICASONE PROPIONATE
     Indication: PRODUCT USED FOR UNKNOWN INDICATION
     Dosage: UNK
     Route: 065
  8. REPOSITORY CORTICOTROPIN INJECTION [Suspect]
     Active Substance: CORTICOTROPIN
     Indication: SARCOIDOSIS
     Dosage: 40 UNITS 0.5 MILLILITER, TWICE A WEEK
     Route: 058
     Dates: start: 20180808
  9. TRIAMCINOLONE [Concomitant]
     Active Substance: TRIAMCINOLONE
     Indication: HYPERSENSITIVITY
     Dosage: 28G X 1
     Route: 065

REACTIONS (50)
  - Diabetes mellitus [Not Recovered/Not Resolved]
  - Pancreatitis chronic [Not Recovered/Not Resolved]
  - Pneumonia [Recovering/Resolving]
  - Back pain [Not Recovered/Not Resolved]
  - Skin abrasion [Unknown]
  - Weight fluctuation [Unknown]
  - Dyspnoea [Unknown]
  - Muscle spasms [Unknown]
  - Peripheral swelling [Unknown]
  - Blindness unilateral [Unknown]
  - Cataract [Unknown]
  - Haemorrhage [Not Recovered/Not Resolved]
  - Ocular hyperaemia [Unknown]
  - Pruritus [Not Recovered/Not Resolved]
  - Contusion [Unknown]
  - Dysphonia [Unknown]
  - Pyrexia [Unknown]
  - Vomiting [Not Recovered/Not Resolved]
  - Psoriasis [Unknown]
  - Weight decreased [Unknown]
  - Abdominal discomfort [Not Recovered/Not Resolved]
  - Joint swelling [Unknown]
  - Mass [Unknown]
  - Pain in extremity [Not Recovered/Not Resolved]
  - Rash [Not Recovered/Not Resolved]
  - Sinusitis [Not Recovered/Not Resolved]
  - Feeling abnormal [Unknown]
  - Poor quality sleep [Not Recovered/Not Resolved]
  - Nausea [Not Recovered/Not Resolved]
  - Acne [Not Recovered/Not Resolved]
  - Headache [Not Recovered/Not Resolved]
  - Product dose omission issue [Not Recovered/Not Resolved]
  - Malaise [Not Recovered/Not Resolved]
  - Tinnitus [Not Recovered/Not Resolved]
  - Asthma [Not Recovered/Not Resolved]
  - Incision site haemorrhage [Recovered/Resolved]
  - Skin discolouration [Not Recovered/Not Resolved]
  - Hunger [Not Recovered/Not Resolved]
  - Pain [Not Recovered/Not Resolved]
  - Joint instability [Not Recovered/Not Resolved]
  - Bronchitis chronic [Not Recovered/Not Resolved]
  - Diarrhoea [Not Recovered/Not Resolved]
  - Fatigue [Not Recovered/Not Resolved]
  - Arthralgia [Not Recovered/Not Resolved]
  - Epistaxis [Unknown]
  - Fall [Unknown]
  - Vertigo [Not Recovered/Not Resolved]
  - Blood glucose decreased [Unknown]
  - Retching [Unknown]
  - Injection site pain [Unknown]

NARRATIVE: CASE EVENT DATE: 2020
